FAERS Safety Report 19480123 (Version 1)
Quarter: 2021Q3

REPORT INFORMATION
  Report Type: Spontaneous
  Country: NL (occurrence: NL)
  Receive Date: 20210701
  Receipt Date: 20210701
  Transmission Date: 20211014
  Serious: Yes (Hospitalization)
  Sender: FDA-Public Use
  Company Number: NL-TEVA-2021-NL-1926986

PATIENT
  Age: 75 Year
  Sex: Male
  Weight: 73 kg

DRUGS (3)
  1. CLOPIDOGREL TABLET   75MG / BRAND NAME NOT SPECIFIED [Interacting]
     Active Substance: CLOPIDOGREL BISULFATE
     Indication: TRANSIENT ISCHAEMIC ATTACK
     Dosage: 1 DOSAGE FORMS DAILY;
     Dates: start: 2018, end: 20210415
  2. ESCITALOPRAM [Suspect]
     Active Substance: ESCITALOPRAM OXALATE
     Indication: DEPRESSION
     Dosage: 1 DOSAGE FORMS DAILY;
     Dates: start: 202001, end: 20210415
  3. LATANOPROST OOGDRUPPELS 50UG/ML / MONOPROST OOGDRUPPELS 50MCG/ML MINIM [Concomitant]
     Dosage: 50 UG/ML,THERAPY START DATE ASKU, THERAPY END DATE ASKU

REACTIONS (2)
  - Drug interaction [Recovered/Resolved]
  - Syncope [Recovered/Resolved]

NARRATIVE: CASE EVENT DATE: 20201225
